FAERS Safety Report 6269852-7 (Version None)
Quarter: 2009Q3

REPORT INFORMATION
  Report Type: 
  Country: None (occurrence: None)
  Receive Date: 20090716
  Receipt Date: 20071121
  Transmission Date: 20100115
  Serious: Yes (Death, Other)
  Sender: FDA-Public Use
  Company Number: US-ASTRAZENECA-2006UW11603

PATIENT
  Age: 69 Year
  Sex: Female
  Weight: 127.3 kg

DRUGS (20)
  1. SEROQUEL [Suspect]
     Indication: MENTAL DISORDER
     Dosage: 25 MG - 400 MG
     Route: 048
     Dates: start: 20040506
  2. SEROQUEL [Suspect]
     Route: 048
     Dates: start: 20050201
  3. HALDOL [Concomitant]
  4. RISPERDAL [Concomitant]
  5. TRILAFON [Concomitant]
  6. ZYPREXA [Concomitant]
  7. DIOVAN [Concomitant]
  8. LASIX [Concomitant]
  9. CARDIZEM [Concomitant]
  10. INSULIN [Concomitant]
  11. COMBIVENT [Concomitant]
  12. PLAVIX [Concomitant]
  13. IMDUR [Concomitant]
  14. ZOCOR [Concomitant]
  15. NITROGLYCERIN [Concomitant]
  16. TRENTAL [Concomitant]
  17. LOZAR [Concomitant]
  18. COGENTIN [Concomitant]
  19. TOFRANIL [Concomitant]
  20. NOVOLIN [Concomitant]

REACTIONS (8)
  - ACUTE MYOCARDIAL INFARCTION [None]
  - CEREBROVASCULAR ACCIDENT [None]
  - DIABETES MELLITUS [None]
  - DIABETES MELLITUS INADEQUATE CONTROL [None]
  - DIABETIC KETOACIDOSIS [None]
  - HYPERTENSION [None]
  - HYPERTENSIVE HEART DISEASE [None]
  - TYPE 2 DIABETES MELLITUS [None]
